FAERS Safety Report 8104579 (Version 4)
Quarter: 2013Q2

REPORT INFORMATION
  Report Type: Spontaneous
  Country: US (occurrence: US)
  Receive Date: 20110824
  Receipt Date: 20130416
  Transmission Date: 20140414
  Serious: Yes (Other)
  Sender: FDA-Public Use
  Company Number: PHHY2011US23272

PATIENT
  Age: 81 Year
  Sex: Male

DRUGS (3)
  1. DIOVAN [Suspect]
     Indication: HYPERTENSION
     Dosage: 160 MG, QD
     Route: 048
  2. PRAVACHOL [Concomitant]
     Indication: HYPERLIPIDAEMIA
     Dosage: 40 MG, DAILY
  3. TARKA [Concomitant]
     Dosage: UNK UKN, UNK

REACTIONS (13)
  - Renal cyst [Unknown]
  - Proteinuria [Recovered/Resolved with Sequelae]
  - Microalbuminuria [Unknown]
  - Renal disorder [Recovered/Resolved with Sequelae]
  - Pulmonary oedema [Recovered/Resolved]
  - Loss of consciousness [Unknown]
  - Hypotension [Recovered/Resolved]
  - Heart rate increased [Unknown]
  - Heart rate decreased [Unknown]
  - Hyperhidrosis [Unknown]
  - Malaise [Unknown]
  - Diarrhoea [Unknown]
  - Medication error [Unknown]
